FAERS Safety Report 13334810 (Version 1)
Quarter: 2017Q1

REPORT INFORMATION
  Report Type: Spontaneous
  Country: US (occurrence: US)
  Receive Date: 20170314
  Receipt Date: 20170314
  Transmission Date: 20170428
  Serious: No
  Sender: FDA-Public Use
  Company Number: US-ASTRAZENECA-2017SE26043

PATIENT
  Age: 74 Year
  Sex: Female
  Weight: 49.4 kg

DRUGS (5)
  1. DALIRESP [Suspect]
     Active Substance: ROFLUMILAST
     Indication: CHRONIC OBSTRUCTIVE PULMONARY DISEASE
     Route: 048
     Dates: start: 201612, end: 201702
  2. ATROVENT [Concomitant]
     Active Substance: IPRATROPIUM BROMIDE
     Dosage: 2 PUFFS 3 TIMES A DAY
  3. LIPITOR [Concomitant]
     Active Substance: ATORVASTATIN CALCIUM
     Indication: BLOOD CHOLESTEROL ABNORMAL
  4. ALBUTEROL. [Concomitant]
     Active Substance: ALBUTEROL
     Dosage: RARELY USES
  5. ADVAIR HFA [Concomitant]
     Active Substance: FLUTICASONE PROPIONATE\SALMETEROL XINAFOATE
     Dosage: ONE PUFF TWICE A DAY

REACTIONS (18)
  - Back pain [Unknown]
  - Pain in extremity [Not Recovered/Not Resolved]
  - Adverse event [Unknown]
  - Dehydration [Recovered/Resolved]
  - Bone pain [Not Recovered/Not Resolved]
  - Constipation [Not Recovered/Not Resolved]
  - Headache [Recovered/Resolved]
  - Product use issue [Not Recovered/Not Resolved]
  - Drug ineffective [Unknown]
  - Intentional product misuse [Recovered/Resolved]
  - Hypertension [Not Recovered/Not Resolved]
  - Skin disorder [Recovered/Resolved]
  - Sciatica [Not Recovered/Not Resolved]
  - Oxygen saturation decreased [Unknown]
  - Abdominal discomfort [Recovered/Resolved]
  - Nodule [Not Recovered/Not Resolved]
  - Weight decreased [Recovered/Resolved]
  - Product use issue [Not Recovered/Not Resolved]

NARRATIVE: CASE EVENT DATE: 2016
